FAERS Safety Report 7764750-1 (Version None)
Quarter: 2011Q3

REPORT INFORMATION
  Report Type: 
  Country: None (occurrence: None)
  Receive Date: 20110921
  Receipt Date: 20110921
  Transmission Date: 20111222
  Serious: Yes (Hospitalization)
  Sender: FDA-Public Use
  Company Number: None

PATIENT
  Age: 61 Year
  Sex: Male
  Weight: 102.05 kg

DRUGS (1)
  1. ARIXTRA [Suspect]
     Indication: KNEE ARTHROPLASTY
     Dosage: 2.5MG
     Route: 058
     Dates: start: 20110505, end: 20110519

REACTIONS (2)
  - EMBOLISM [None]
  - THROMBOCYTOPENIA [None]
